FAERS Safety Report 5346149-0 (Version None)
Quarter: 2007Q2

REPORT INFORMATION
  Report Type: 
  Country: None (occurrence: None)
  Receive Date: 20070605
  Receipt Date: 20070525
  Transmission Date: 20071010
  Serious: Yes (Hospitalization)
  Sender: FDA-Public Use
  Company Number: US-JNJFOC-20070506596

PATIENT
  Age: 69 Year
  Sex: Female

DRUGS (2)
  1. IMODIUM A-D [Suspect]
  2. IMODIUM A-D [Suspect]
     Indication: DRUG USE FOR UNKNOWN INDICATION
     Dosage: UP TO 20 DAILY

REACTIONS (4)
  - BLOOD GLUCOSE INCREASED [None]
  - DEPRESSED LEVEL OF CONSCIOUSNESS [None]
  - INTENTIONAL OVERDOSE [None]
  - TORSADE DE POINTES [None]
